FAERS Safety Report 8958947 (Version 2)
Quarter: 2012Q4

REPORT INFORMATION
  Report Type: 
  Country: AU (occurrence: AU)
  Receive Date: 20121211
  Receipt Date: 20121220
  Transmission Date: 20130627
  Serious: Yes (Death)
  Sender: FDA-Public Use
  Company Number: AU-B.I. PHARMACEUTICALS,INC./RIDGEFIELD-2012-AU-01970AU

PATIENT
  Age: 73 Year
  Sex: Male

DRUGS (15)
  1. PRADAXA [Suspect]
     Indication: CEREBROVASCULAR ACCIDENT PROPHYLAXIS
     Dates: start: 20111013
  2. PRADAXA [Suspect]
     Indication: ATRIAL FIBRILLATION
  3. ARATAC [Concomitant]
  4. CIPRAMIL [Concomitant]
  5. DIABEX [Concomitant]
  6. GLYADE [Concomitant]
  7. LANOXIN-PG [Concomitant]
  8. LANTUS [Concomitant]
  9. LASIX [Concomitant]
  10. LIPITOR [Concomitant]
  11. PERINDO [Concomitant]
  12. SPIRIVA [Concomitant]
  13. CARDIZEM [Concomitant]
  14. SERETIDE [Concomitant]
  15. VENTOLIN [Concomitant]

REACTIONS (3)
  - Cardiac failure congestive [Fatal]
  - Chronic obstructive pulmonary disease [Fatal]
  - Dyspnoea [Unknown]
